FAERS Safety Report 12683967 (Version 2)
Quarter: 2016Q4

REPORT INFORMATION
  Report Type: Spontaneous
  Country: IE (occurrence: IE)
  Receive Date: 20160825
  Receipt Date: 20161012
  Transmission Date: 20170207
  Serious: Yes (Hospitalization)
  Sender: FDA-Public Use
  Company Number: IE-PFIZER INC-2012029829

PATIENT
  Age: 69 Year
  Sex: Male

DRUGS (5)
  1. TINZAPARIN [Concomitant]
     Active Substance: TINZAPARIN
     Dosage: 1400, 1X/DAY
     Route: 058
  2. RAMIPRIL. [Concomitant]
     Active Substance: RAMIPRIL
     Dosage: 5 MG, UNK
  3. MST /00036302/ [Concomitant]
     Active Substance: MORPHINE SULFATE
     Dosage: 10 MG, 2X/DAY
  4. SUTENT [Suspect]
     Active Substance: SUNITINIB MALATE
     Indication: METASTATIC RENAL CELL CARCINOMA
     Dosage: 50 MG, CYCLIC (ON 4/2 SCHEDULE)
     Dates: start: 20120109
  5. ALLOPURINOL. [Concomitant]
     Active Substance: ALLOPURINOL
     Dosage: 200 MG, 1X/DAY

REACTIONS (3)
  - Oropharyngeal pain [Unknown]
  - Hypertension [Unknown]
  - Dehydration [Unknown]
